FAERS Safety Report 8232219-6 (Version None)
Quarter: 2012Q1

REPORT INFORMATION
  Report Type: 
  Country: None (occurrence: None)
  Receive Date: 20120323
  Receipt Date: 20120315
  Transmission Date: 20120608
  Serious: Yes (Life-Threatening, Hospitalization)
  Sender: FDA-Public Use
  Company Number: ES-SANOFI-AVENTIS-2012SA017848

PATIENT
  Age: 33 Year
  Sex: Male

DRUGS (5)
  1. ZOLPIDEM [Suspect]
     Route: 048
     Dates: start: 20110401, end: 20110604
  2. NORTESTOSTERONE [Suspect]
     Route: 030
     Dates: start: 20100101, end: 20110601
  3. DROSTANOLONE [Suspect]
     Route: 030
     Dates: start: 20100101, end: 20110601
  4. DIAZEPAM [Suspect]
     Route: 048
     Dates: start: 20110401, end: 20110604
  5. TRENBOLONE [Suspect]
     Route: 030
     Dates: start: 20100101, end: 20110601

REACTIONS (1)
  - ENCEPHALOPATHY [None]
